FAERS Safety Report 14166653 (Version 1)
Quarter: 2017Q4

REPORT INFORMATION
  Report Type: Spontaneous
  Country: US (occurrence: None)
  Receive Date: 20171106
  Receipt Date: 20171106
  Transmission Date: 20180321
  Serious: No
  Sender: FDA-Public Use
  Company Number: None

PATIENT
  Sex: Female

DRUGS (1)
  1. OTEZLA [Suspect]
     Active Substance: APREMILAST
     Indication: PSORIATIC ARTHROPATHY
     Dosage: AD DIRECTED

REACTIONS (12)
  - Pain [None]
  - Back pain [None]
  - Musculoskeletal pain [None]
  - Headache [None]
  - Therapy cessation [None]
  - Arthralgia [None]
  - Nausea [None]
  - Insomnia [None]
  - Diarrhoea [None]
  - Breast pain [None]
  - Decreased appetite [None]
  - Muscle spasms [None]
